FAERS Safety Report 24289148 (Version 6)
Quarter: 2024Q4

REPORT INFORMATION
  Report Type: Report from Study
  Country: US (occurrence: US)
  Receive Date: 20240906
  Receipt Date: 20241204
  Transmission Date: 20250115
  Serious: No
  Sender: ACADIA PHARMACEUTICALS
  Company Number: US-ACADIA PHARMACEUTICALS INC.-ACA-2024-TRF-004681

PATIENT
  Age: 10 Year
  Sex: Male

DRUGS (14)
  1. DAYBUE [Suspect]
     Active Substance: TROFINETIDE
     Indication: Rett syndrome
     Dosage: 20 MILLILITER, BID
     Route: 048
     Dates: start: 20240712
  2. TYLENOL [Suspect]
     Active Substance: ACETAMINOPHEN
     Indication: SARS-CoV-2 test positive
  3. QVAR REDIHALER [Concomitant]
     Active Substance: BECLOMETHASONE DIPROPIONATE
     Dosage: 40 MCG/ACT AEROSOL (1 PUFF 2 TIMES DAILY)
     Dates: start: 20240529
  4. QVAR REDIHALER [Concomitant]
     Active Substance: BECLOMETHASONE DIPROPIONATE
     Dosage: UNK
     Dates: start: 20240529
  5. VENTOLIN HFA [Concomitant]
     Active Substance: ALBUTEROL SULFATE
     Indication: Wheezing
     Dosage: 108 (90 BASE) 2 PUFF EVERY 4 HOURS PRN
     Dates: start: 20240529
  6. VENTOLIN HFA [Concomitant]
     Active Substance: ALBUTEROL SULFATE
     Indication: Dyspnoea
  7. KENALOG [Concomitant]
     Active Substance: TRIAMCINOLONE ACETONIDE
     Dosage: 0.025% PRN
     Route: 061
     Dates: start: 20180322
  8. CRISABOROLE [Concomitant]
     Active Substance: CRISABOROLE
     Dosage: 2 PERCENT
     Dates: start: 20180315
  9. PEDIASURE PEPTIDE 1.5 CAL [Concomitant]
     Indication: Failure to thrive
     Dosage: 3.5 CANS (VANILLA FLAVOR)
     Route: 048
     Dates: start: 20230328
  10. IMODIUM [Concomitant]
     Active Substance: LOPERAMIDE HYDROCHLORIDE
     Indication: Rett syndrome
     Dosage: 1 MILLIGRAM QD (TAKE 5 ML )
     Route: 048
     Dates: start: 20240712
  11. CHRONULAC [Concomitant]
     Active Substance: LACTULOSE
     Indication: Constipation
     Dosage: 5 GRAM (TAKE 7.5 ML )
     Route: 048
     Dates: start: 20240401
  12. EPIPEN JR [Concomitant]
     Active Substance: EPINEPHRINE
     Indication: Hypersensitivity
     Dosage: 0.15 MG !M * 1 AS NEEDED
     Dates: start: 20180315
  13. CYPROHEPTADINE [Concomitant]
     Active Substance: CYPROHEPTADINE
     Indication: Rett syndrome
     Dosage: TAKE 7.5 ML (3 MG TOTAL) BY MOUTH NIGHTLY
     Route: 048
     Dates: start: 20241024
  14. CETIRIZINE HCL [Concomitant]
     Active Substance: CETIRIZINE HYDROCHLORIDE
     Dosage: 5 MILLILITER, QD (5 MG TOTAL)
     Route: 048
     Dates: start: 20240529, end: 20240628

REACTIONS (6)
  - Weight decreased [Not Recovered/Not Resolved]
  - Hypophagia [Not Recovered/Not Resolved]
  - Retching [Not Recovered/Not Resolved]
  - COVID-19 [Recovered/Resolved]
  - Diarrhoea [Not Recovered/Not Resolved]
  - Fatigue [Not Recovered/Not Resolved]

NARRATIVE: CASE EVENT DATE: 20240901
